FAERS Safety Report 9199863 (Version 1)
Quarter: 2013Q1

REPORT INFORMATION
  Report Type: Spontaneous
  Country: US (occurrence: US)
  Receive Date: 20130329
  Receipt Date: 20130329
  Transmission Date: 20140127
  Serious: Yes (Hospitalization, Other)
  Sender: FDA-Public Use
  Company Number: US-ELI_LILLY_AND_COMPANY-US201303007852

PATIENT
  Sex: Male
  Weight: 113.38 kg

DRUGS (5)
  1. BYETTA [Suspect]
     Indication: TYPE 2 DIABETES MELLITUS
     Dosage: 5 UG, BID
     Route: 058
     Dates: start: 201203
  2. BYETTA [Suspect]
     Dosage: 10 UG, BID
     Route: 058
     Dates: end: 201302
  3. BYETTA [Suspect]
     Dosage: 10 UG, BID
     Route: 058
  4. METFORMIN [Concomitant]
     Indication: TYPE 2 DIABETES MELLITUS
     Dosage: UNK
     Route: 048
  5. GLIMEPIRIDE [Concomitant]
     Dosage: UNK
     Route: 048

REACTIONS (3)
  - Pneumonia [Recovering/Resolving]
  - Blood glucose increased [Unknown]
  - Nausea [Not Recovered/Not Resolved]
